FAERS Safety Report 19919032 (Version 1)
Quarter: 2021Q4

REPORT INFORMATION
  Report Type: Spontaneous
  Country: JP (occurrence: JP)
  Receive Date: 20211005
  Receipt Date: 20211005
  Transmission Date: 20220303
  Serious: Yes (Death, Other)
  Sender: FDA-Public Use
  Company Number: JP-CELLTRION-2021-JP-000472

PATIENT
  Age: 7 Decade
  Sex: Male

DRUGS (1)
  1. ROPINIROLE HYDROCHLORIDE [Suspect]
     Active Substance: ROPINIROLE HYDROCHLORIDE
     Indication: Parkinson^s disease
     Route: 065

REACTIONS (3)
  - Cardiotoxicity [Unknown]
  - Sudden onset of sleep [Unknown]
  - Drowning [Fatal]
